FAERS Safety Report 20813059 (Version 7)
Quarter: 2023Q1

REPORT INFORMATION
  Report Type: Report from Study
  Country: CO (occurrence: CO)
  Receive Date: 20220511
  Receipt Date: 20230118
  Transmission Date: 20230417
  Serious: Yes (Hospitalization, Other)
  Sender: FDA-Public Use
  Company Number: CO-AMGEN-COLSL2022078997

PATIENT
  Age: 84 Year
  Sex: Female

DRUGS (3)
  1. VECTIBIX [Suspect]
     Active Substance: PANITUMUMAB
     Indication: Colorectal cancer metastatic
     Dosage: 567 MILLIGRAM, EVERY 20 DAYS
     Route: 042
     Dates: start: 20220307
  2. VECTIBIX [Suspect]
     Active Substance: PANITUMUMAB
     Dosage: 567 MILLIGRAM, Q2WK
     Route: 042
  3. Polyvinyl alcohol microspheres [Concomitant]
     Indication: Product used for unknown indication
     Dosage: APPLY 1 OR 2 DROPS IN EACH EYE 2 TO 3 TIMES A DAY.
     Route: 061

REACTIONS (9)
  - Dizziness [Recovered/Resolved]
  - Gastroenteritis viral [Recovered/Resolved]
  - Hospitalisation [Not Recovered/Not Resolved]
  - Cough [Not Recovered/Not Resolved]
  - Erythema [Not Recovered/Not Resolved]
  - Off label use [Unknown]
  - Influenza [Not Recovered/Not Resolved]
  - Discomfort [Not Recovered/Not Resolved]
  - Malaise [Not Recovered/Not Resolved]

NARRATIVE: CASE EVENT DATE: 20220101
